FAERS Safety Report 6108964-5 (Version None)
Quarter: 2009Q1

REPORT INFORMATION
  Report Type: 
  Country: None (occurrence: None)
  Receive Date: 20090306
  Receipt Date: 20090223
  Transmission Date: 20090719
  Serious: Yes (Other)
  Sender: FDA-Public Use
  Company Number: PAR_02333_2008

PATIENT
  Sex: Male

DRUGS (3)
  1. IBUPROFEN [Suspect]
     Indication: PAIN
     Dosage: DF
     Dates: start: 20080330, end: 20080401
  2. IBUPROFEN [Suspect]
     Indication: PYREXIA
     Dosage: DF
     Dates: start: 20080330, end: 20080401
  3. CEFACLOR [Suspect]
     Indication: SCARLET FEVER
     Dosage: 250 MG TID ORAL
     Route: 048
     Dates: start: 20080330, end: 20080401

REACTIONS (6)
  - BILIRUBINURIA [None]
  - BLOOD BILIRUBIN INCREASED [None]
  - CHROMATURIA [None]
  - GAMMA-GLUTAMYLTRANSFERASE INCREASED [None]
  - OCULAR ICTERUS [None]
  - TRANSAMINASES INCREASED [None]
